FAERS Safety Report 8048063-9 (Version None)
Quarter: 2012Q1

REPORT INFORMATION
  Report Type: 
  Country: None (occurrence: None)
  Receive Date: 20120117
  Receipt Date: 20120110
  Transmission Date: 20120608
  Serious: No
  Sender: FDA-Public Use
  Company Number: US-BIOGENIDEC-2012BI001176

PATIENT
  Age: 58 Year
  Sex: Female

DRUGS (5)
  1. VICODIN [Concomitant]
     Indication: PREMEDICATION
     Dates: start: 20110101
  2. MOTION SICKNESS PILL (NOS) [Concomitant]
     Indication: PREMEDICATION
     Dates: start: 20110101
  3. SLEEPING PILL (NOS) [Concomitant]
     Indication: PREMEDICATION
     Dates: start: 20110101
  4. TRAMADOL HCL [Concomitant]
     Indication: PREMEDICATION
     Dates: start: 20111003
  5. AVONEX [Suspect]
     Indication: MULTIPLE SCLEROSIS
     Route: 030
     Dates: start: 20111003

REACTIONS (2)
  - DIARRHOEA [None]
  - INFLUENZA LIKE ILLNESS [None]
